FAERS Safety Report 10393053 (Version 1)
Quarter: 2014Q3

REPORT INFORMATION
  Report Type: Spontaneous
  Country: FR (occurrence: FR)
  Receive Date: 20140819
  Receipt Date: 20140819
  Transmission Date: 20150326
  Serious: Yes (Other)
  Sender: FDA-Public Use
  Company Number: FR-BAYER-2014-120382

PATIENT
  Age: 64 Year
  Sex: Female

DRUGS (2)
  1. CIFLOX [Suspect]
     Active Substance: CIPROFLOXACIN
     Indication: CYSTITIS
     Dosage: 1 DF, ONCE
     Route: 048
     Dates: start: 20140623, end: 20140730
  2. SPASFON [Suspect]
     Active Substance: PHLOROGLUCINOL
     Dosage: 1 DF, ONCE
     Route: 048
     Dates: start: 20140623, end: 20140730

REACTIONS (3)
  - Erythema [Recovered/Resolved]
  - Lip oedema [Recovered/Resolved]
  - Laryngeal discomfort [Recovered/Resolved]

NARRATIVE: CASE EVENT DATE: 20140623
